FAERS Safety Report 5847558-3 (Version None)
Quarter: 2008Q3

REPORT INFORMATION
  Report Type: 
  Country: None (occurrence: None)
  Receive Date: 20080818
  Receipt Date: 20070531
  Transmission Date: 20090109
  Serious: No
  Sender: FDA-Public Use
  Company Number: CA-BAYER-200712327GDS

PATIENT

DRUGS (1)
  1. SORAFENIB [Suspect]
     Route: 048

REACTIONS (1)
  - PULMONARY EMBOLISM [None]
